FAERS Safety Report 7765173-1 (Version None)
Quarter: 2011Q3

REPORT INFORMATION
  Report Type: 
  Country: None (occurrence: None)
  Receive Date: 20110919
  Receipt Date: 20110912
  Transmission Date: 20111222
  Serious: Yes (Other)
  Sender: FDA-Public Use
  Company Number: A0937288A

PATIENT
  Age: 102 Year
  Sex: Male

DRUGS (1)
  1. METHYLCELLULOSE (FORMULATION UNKNOWN) SUGAR FREE ORANGE (METHYLCELLULO [Suspect]
     Dosage: UNK/UNK/UNKNOWN

REACTIONS (2)
  - BACK PAIN [None]
  - NEPHROLITHIASIS [None]
